FAERS Safety Report 7425322-1 (Version None)
Quarter: 2011Q2

REPORT INFORMATION
  Report Type: 
  Country: None (occurrence: None)
  Receive Date: 20110420
  Receipt Date: 20110406
  Transmission Date: 20111010
  Serious: Yes (Other)
  Sender: FDA-Public Use
  Company Number: PHHY2011US27043

PATIENT
  Age: 62 Year
  Sex: Female

DRUGS (3)
  1. ZADITOR [Suspect]
     Dosage: BID
  2. GENTEAL [Suspect]
     Indication: DRY EYE
     Dosage: 15-30 MINUTES EVERY DAY
     Route: 047
  3. RESTASIS [Suspect]

REACTIONS (1)
  - CORNEAL ABRASION [None]
